FAERS Safety Report 24343564 (Version 3)
Quarter: 2024Q4

REPORT INFORMATION
  Report Type: Spontaneous
  Country: US (occurrence: US)
  Receive Date: 20240920
  Receipt Date: 20241231
  Transmission Date: 20250115
  Serious: No
  Sender: PFIZER
  Company Number: US-PFIZER INC-202400254196

PATIENT
  Age: 9 Year
  Sex: Female

DRUGS (3)
  1. GENOTROPIN [Suspect]
     Active Substance: SOMATROPIN
     Indication: Turner^s syndrome
     Dosage: 1.4 MG, DAILY
     Dates: start: 20240910
  2. GENOTROPIN [Suspect]
     Active Substance: SOMATROPIN
     Indication: Short stature
  3. LEVOTHYROXINE [Concomitant]
     Active Substance: LEVOTHYROXINE

REACTIONS (7)
  - Product contamination [Unknown]
  - Device defective [Unknown]
  - Needle issue [Unknown]
  - Liquid product physical issue [Unknown]
  - Product substitution issue [Unknown]
  - Device difficult to use [Unknown]
  - Product label confusion [Unknown]

NARRATIVE: CASE EVENT DATE: 20240910
